FAERS Safety Report 13225393 (Version 1)
Quarter: 2017Q1

REPORT INFORMATION
  Report Type: Spontaneous
  Country: DE (occurrence: DE)
  Receive Date: 20170213
  Receipt Date: 20170213
  Transmission Date: 20170428
  Serious: Yes (Other)
  Sender: FDA-Public Use
  Company Number: DE-ASTELLAS-2017US004742

PATIENT
  Sex: Male

DRUGS (2)
  1. XTANDI [Suspect]
     Active Substance: ENZALUTAMIDE
     Indication: PRODUCT USED FOR UNKNOWN INDICATION
     Dosage: UNK UNK, UNKNOWN FREQ. (14 DAYS AGO)
     Route: 065
  2. TIMOX /00596701/ [Interacting]
     Active Substance: OXCARBAZEPINE
     Indication: EPILEPSY
     Dosage: 450 MG, TWICE DAILY (LONG TERM THERAPY)
     Route: 065

REACTIONS (4)
  - Fatigue [Unknown]
  - Drug interaction [Unknown]
  - Activities of daily living impaired [Unknown]
  - Tremor [Unknown]
